FAERS Safety Report 6548654-8 (Version None)
Quarter: 2010Q1

REPORT INFORMATION
  Report Type: 
  Country: None (occurrence: None)
  Receive Date: 20100124
  Receipt Date: 20091012
  Transmission Date: 20100710
  Serious: No
  Sender: FDA-Public Use
  Company Number: US-ALLERGAN-0913967US

PATIENT
  Sex: Female

DRUGS (5)
  1. RESTASIS [Suspect]
     Indication: DRY EYE
     Dosage: 1 GTT, BID
     Route: 047
     Dates: start: 20090801
  2. RESTASIS [Suspect]
     Dosage: 1 GTT, BID
     Route: 047
     Dates: start: 20090801
  3. REFRESH LUBRICANT OPHTHALMIC SOLUTION [Concomitant]
     Dosage: ^A LOT^
  4. AZOPT [Concomitant]
     Indication: GLAUCOMA
     Dosage: COUPLE OF YEARS NOW
  5. TRAVATAN [Concomitant]
     Indication: GLAUCOMA
     Dosage: COUPLE OF YEARS NOW

REACTIONS (7)
  - ASTHENOPIA [None]
  - DYSGEUSIA [None]
  - EYE IRRITATION [None]
  - FATIGUE [None]
  - POSTNASAL DRIP [None]
  - SKIN TIGHTNESS [None]
  - TENSION HEADACHE [None]
